FAERS Safety Report 15395744 (Version 1)
Quarter: 2018Q3

REPORT INFORMATION
  Report Type: Spontaneous
  Country: CA (occurrence: CA)
  Receive Date: 20180918
  Receipt Date: 20180918
  Transmission Date: 20181010
  Serious: Yes (Hospitalization)
  Sender: FDA-Public Use
  Company Number: CA-CELLTRION INC.-2018CA021410

PATIENT

DRUGS (10)
  1. T3 [Concomitant]
     Active Substance: LIOTHYRONINE SODIUM
     Dosage: UNK
  2. AMITRIPTYLINE [Concomitant]
     Active Substance: AMITRIPTYLINE
     Dosage: UNK
  3. TRAMADOL. [Concomitant]
     Active Substance: TRAMADOL
     Dosage: UNK, PRN
  4. ONDANSETRON [Concomitant]
     Active Substance: ONDANSETRON
     Dosage: UNK, PRN
  5. INFLECTRA [Suspect]
     Active Substance: INFLIXIMAB-DYYB
     Indication: CROHN^S DISEASE
     Dosage: 300 MG, CYCLIC Q(EVERY) 0, 2, 6 WEEKS, THEN EVERY 8  WEEKS
     Route: 042
     Dates: start: 20180705
  6. ASHWAGANDHA                        /01660201/ [Concomitant]
     Active Substance: HERBALS
     Dosage: UNK
  7. MEZAVANT [Concomitant]
     Active Substance: MESALAMINE
     Dosage: 3 DF, DAILY
  8. QUETIAPINE. [Concomitant]
     Active Substance: QUETIAPINE
     Dosage: UNK
  9. INFLECTRA [Suspect]
     Active Substance: INFLIXIMAB-DYYB
     Dosage: 300 MG, CYCLIC (EVERY 0, 2, 6 WEEKS, THEN EVERY 8 WEEKS)
     Route: 042
     Dates: start: 20180820
  10. CORTIMENT                          /00028601/ [Concomitant]
     Active Substance: HYDROCORTISONE
     Dosage: UNK
     Dates: start: 20180531

REACTIONS (15)
  - Bone pain [Unknown]
  - Panic attack [Unknown]
  - Weight increased [Unknown]
  - Vomiting [Unknown]
  - Headache [Unknown]
  - Nausea [Not Recovered/Not Resolved]
  - Feeling of body temperature change [Unknown]
  - Insomnia [Unknown]
  - Influenza like illness [Unknown]
  - Blood pressure fluctuation [Unknown]
  - Vision blurred [Recovering/Resolving]
  - Condition aggravated [Unknown]
  - Feeding disorder [Not Recovered/Not Resolved]
  - Anxiety [Unknown]
  - Pain [Not Recovered/Not Resolved]

NARRATIVE: CASE EVENT DATE: 2018
